FAERS Safety Report 25194435 (Version 1)
Quarter: 2025Q2

REPORT INFORMATION
  Report Type: Report from Study
  Country: JP (occurrence: JP)
  Receive Date: 20250414
  Receipt Date: 20250414
  Transmission Date: 20250716
  Serious: Yes (Hospitalization)
  Sender: ABBVIE
  Company Number: JP-ABBVIE-6115934

PATIENT
  Age: 71 Year
  Sex: Female

DRUGS (3)
  1. VYALEV [Suspect]
     Active Substance: FOSCARBIDOPA\FOSLEVODOPA
     Indication: Parkinson^s disease
     Route: 058
     Dates: start: 20241224
  2. VYALEV [Suspect]
     Active Substance: FOSCARBIDOPA\FOSLEVODOPA
     Route: 058
     Dates: start: 2025
  3. LEVODOPA [Concomitant]
     Active Substance: LEVODOPA
     Indication: Parkinson^s disease
     Route: 048
     Dates: start: 2025

REACTIONS (5)
  - Malaise [Unknown]
  - Infusion site induration [Unknown]
  - Intentional product misuse [Unknown]
  - Infusion site reaction [Unknown]
  - Infusion site discolouration [Unknown]
